FAERS Safety Report 25416822 (Version 1)
Quarter: 2025Q2

REPORT INFORMATION
  Report Type: Report from Study
  Country: CA (occurrence: CA)
  Receive Date: 20250610
  Receipt Date: 20250610
  Transmission Date: 20250716
  Serious: Yes (Hospitalization)
  Sender: AUROBINDO
  Company Number: CA-AUROBINDO-AUR-APL-2022-004971

PATIENT
  Age: 59 Year
  Sex: Male

DRUGS (18)
  1. GABAPENTIN [Suspect]
     Active Substance: GABAPENTIN
     Indication: Somatic delusion
     Dosage: 300 MILLIGRAM, 3 TIMES A DAY
     Route: 048
  2. GABAPENTIN [Suspect]
     Active Substance: GABAPENTIN
     Indication: Bipolar disorder
  3. VENLAFAXINE HYDROCHLORIDE [Suspect]
     Active Substance: VENLAFAXINE HYDROCHLORIDE
     Indication: Somatic delusion
     Dosage: 75 MILLIGRAM, ONCE A DAY
     Route: 048
  4. VENLAFAXINE HYDROCHLORIDE [Suspect]
     Active Substance: VENLAFAXINE HYDROCHLORIDE
     Indication: Bipolar disorder
  5. CLOZAPINE [Suspect]
     Active Substance: CLOZAPINE
     Indication: Somatic delusion
     Dosage: 25 MILLIGRAM, ONCE A DAY
     Route: 048
  6. CLOZAPINE [Suspect]
     Active Substance: CLOZAPINE
     Indication: Bipolar disorder
  7. LURASIDONE HYDROCHLORIDE [Suspect]
     Active Substance: LURASIDONE HYDROCHLORIDE
     Indication: Somatic delusion
     Dosage: 120 MILLIGRAM, ONCE A DAY
     Route: 048
  8. LURASIDONE HYDROCHLORIDE [Suspect]
     Active Substance: LURASIDONE HYDROCHLORIDE
     Indication: Bipolar disorder
  9. ZOPICLONE [Suspect]
     Active Substance: ZOPICLONE
     Indication: Somatic delusion
     Dosage: 7.5 MILLIGRAM, ONCE A DAY
     Route: 065
  10. ZOPICLONE [Suspect]
     Active Substance: ZOPICLONE
     Indication: Bipolar disorder
  11. ZOPICLONE [Suspect]
     Active Substance: ZOPICLONE
     Indication: Irritability
  12. ZOPICLONE [Suspect]
     Active Substance: ZOPICLONE
     Indication: Electroencephalogram abnormal
  13. ZOPICLONE [Suspect]
     Active Substance: ZOPICLONE
     Indication: Somatic delusion
     Dosage: 7.5 MILLIGRAM, FOUR TIMES/DAY
     Route: 065
  14. ZOPICLONE [Suspect]
     Active Substance: ZOPICLONE
     Indication: Bipolar disorder
  15. ZOPICLONE [Suspect]
     Active Substance: ZOPICLONE
     Indication: Irritability
  16. ZOPICLONE [Suspect]
     Active Substance: ZOPICLONE
     Indication: Electroencephalogram abnormal
  17. PHENELZINE [Concomitant]
     Active Substance: PHENELZINE
     Indication: Somatic delusion
     Dosage: 45 MILLIGRAM, TWO TIMES A DAY
     Route: 048
  18. PHENELZINE [Concomitant]
     Active Substance: PHENELZINE
     Indication: Bipolar disorder

REACTIONS (2)
  - Off label use [Unknown]
  - Drug ineffective [Unknown]
